FAERS Safety Report 10681786 (Version 5)
Quarter: 2015Q1

REPORT INFORMATION
  Report Type: Report from Study
  Country: RU (occurrence: RU)
  Receive Date: 20141230
  Receipt Date: 20150317
  Transmission Date: 20150720
  Serious: Yes (Other)
  Sender: FDA-Public Use
  Company Number: RU-SA-2014SA175325

PATIENT
  Age: 59 Year
  Sex: Female
  Weight: 65 kg

DRUGS (9)
  1. PREDUCTAL [Concomitant]
     Active Substance: TRIMETAZIDINE DIHYDROCHLORIDE
     Indication: ANGINA PECTORIS
  2. DIUVER [Concomitant]
     Active Substance: TORSEMIDE
     Indication: SWELLING
  3. LEVEMIR [Concomitant]
     Active Substance: INSULIN DETEMIR
     Indication: TYPE 1 DIABETES MELLITUS
  4. PLAVIX [Suspect]
     Active Substance: CLOPIDOGREL BISULFATE
     Indication: THROMBOSIS PROPHYLAXIS
     Route: 048
     Dates: start: 201312, end: 20150224
  5. ASPARCAM [Concomitant]
     Indication: ARRHYTHMIA
     Route: 048
     Dates: start: 201412, end: 201412
  6. MILDRONATE [Concomitant]
     Indication: CARDIAC FAILURE CHRONIC
     Route: 048
     Dates: start: 201311
  7. CONCOR [Concomitant]
     Active Substance: BISOPROLOL FUMARATE
     Indication: HYPERTENSION
     Dosage: 1/4 TABLET, TWO TIMES DAILY
     Route: 048
     Dates: start: 201411
  8. HUMALOG [Concomitant]
     Active Substance: INSULIN LISPRO
  9. LIPRIMAR [Concomitant]
     Active Substance: ATORVASTATIN CALCIUM
     Indication: HYPERCHOLESTEROLAEMIA
     Route: 048
     Dates: start: 201312

REACTIONS (2)
  - Blood pressure decreased [Recovered/Resolved]
  - Paroxysmal arrhythmia [Recovered/Resolved]

NARRATIVE: CASE EVENT DATE: 201409
